FAERS Safety Report 25990554 (Version 2)
Quarter: 2025Q4

REPORT INFORMATION
  Report Type: Spontaneous
  Country: IR (occurrence: IR)
  Receive Date: 20251103
  Receipt Date: 20251105
  Transmission Date: 20260118
  Serious: Yes (Death, Life-Threatening, Hospitalization, Other)
  Sender: SANOFI AVENTIS
  Company Number: IR-DialogSolutions-SAAVPROD-PI835075-C1

PATIENT
  Age: 37 Year
  Sex: Female

DRUGS (5)
  1. ANTI-THYMOCYTE GLOBULIN (RABBIT) NOS [Suspect]
     Active Substance: LAPINE T-LYMPHOCYTE IMMUNE GLOBULIN
     Indication: Immunosuppressant drug therapy
     Dosage: 1.5 MG/KG/DAY FOR 7 DAYS
     Dates: start: 2008
  2. METHYLPREDNISOLONE HEMISUCCINATE [Suspect]
     Active Substance: METHYLPREDNISOLONE HEMISUCCINATE
     Indication: Immunosuppressant drug therapy
     Dosage: 500MG/DAY FOR 3 DAYS
     Dates: start: 2008
  3. PREDNISOLONE [Suspect]
     Active Substance: PREDNISOLONE
     Indication: Immunosuppressant drug therapy
     Dosage: 30.000MG QD
     Dates: start: 2008
  4. CYCLOSPORINE [Suspect]
     Active Substance: CYCLOSPORINE
     Indication: Immunosuppressant drug therapy
     Dosage: 75.000MG QD
     Dates: start: 2008
  5. AZATHIOPRINE [Suspect]
     Active Substance: AZATHIOPRINE
     Indication: Immunosuppressant drug therapy
     Dosage: 1.500MG/KG QD
     Dates: start: 2008

REACTIONS (11)
  - Haemophagocytic lymphohistiocytosis [Fatal]
  - Hairy cell leukaemia [Fatal]
  - Epstein-Barr virus antibody positive [Unknown]
  - Respiratory failure [Fatal]
  - Multiple organ dysfunction syndrome [Fatal]
  - Disseminated intravascular coagulation [Fatal]
  - Pancytopenia [Unknown]
  - Anaemia [Unknown]
  - Anuria [Unknown]
  - Pyrexia [Unknown]
  - Hypotension [Unknown]
